FAERS Safety Report 19739855 (Version 2)
Quarter: 2021Q3

REPORT INFORMATION
  Report Type: Spontaneous
  Country: FR (occurrence: FR)
  Receive Date: 20210823
  Receipt Date: 20210907
  Transmission Date: 20211014
  Serious: Yes (Hospitalization)
  Sender: FDA-Public Use
  Company Number: NVSC2021FR185699

PATIENT
  Age: 47 Year
  Sex: Male
  Weight: 92 kg

DRUGS (16)
  1. ETOPOSIDE. [Suspect]
     Active Substance: ETOPOSIDE
     Dosage: 400 MG
     Route: 041
     Dates: start: 20210713, end: 20210713
  2. PREDNISONE. [Suspect]
     Active Substance: PREDNISONE
     Indication: HODGKIN^S DISEASE
     Dosage: 80 MG, QD, PER DAY FOR 11 DAYS
     Route: 048
     Dates: start: 20210623, end: 20210628
  3. PREDNISONE. [Suspect]
     Active Substance: PREDNISONE
     Dosage: 80 MG
     Route: 048
     Dates: start: 20210714, end: 20210719
  4. METHYLPREDNISOLONE. [Suspect]
     Active Substance: METHYLPREDNISOLONE
     Indication: HODGKIN^S DISEASE
     Dosage: 80 MG, QD
     Route: 041
     Dates: start: 20210622, end: 20210622
  5. ETOPOSIDE. [Suspect]
     Active Substance: ETOPOSIDE
     Indication: HODGKIN^S DISEASE
     Dosage: 400 MG, QD
     Route: 041
     Dates: start: 20210622, end: 20210622
  6. ENDOXAN [Suspect]
     Active Substance: CYCLOPHOSPHAMIDE
     Dosage: 2500 MG
     Route: 041
     Dates: start: 20210713, end: 20210713
  7. ETOPOSIDE. [Suspect]
     Active Substance: ETOPOSIDE
     Indication: HODGKIN^S DISEASE
     Dosage: 800 MG, QD
     Route: 048
     Dates: start: 20210623, end: 20210624
  8. DOXORUBICIN HYDROCHLORIDE. [Suspect]
     Active Substance: DOXORUBICIN HYDROCHLORIDE
     Dosage: 70 MG
     Route: 041
     Dates: start: 20210713, end: 20210713
  9. BLEOMYCIN SULFATE [Suspect]
     Active Substance: BLEOMYCIN SULFATE
     Indication: HODGKIN^S DISEASE
     Dosage: 20 MG, QD (ON D8)
     Route: 041
     Dates: start: 20210629, end: 20210629
  10. METHYLPREDNISOLONE. [Suspect]
     Active Substance: METHYLPREDNISOLONE
     Dosage: 80 MG, QD
     Route: 041
     Dates: start: 20210713, end: 20210713
  11. PROCARBAZINE [Suspect]
     Active Substance: PROCARBAZINE
     Indication: HODGKIN^S DISEASE
     Dosage: 200 MG, QD, PER DAY FOR 7 DAYS
     Route: 048
     Dates: start: 20210623, end: 20210629
  12. ETOPOSIDE. [Suspect]
     Active Substance: ETOPOSIDE
     Dosage: 200 MG, Q12H (ON D2 AND D3)
     Route: 048
     Dates: start: 20210714, end: 20210715
  13. DOXORUBICIN HYDROCHLORIDE. [Suspect]
     Active Substance: DOXORUBICIN HYDROCHLORIDE
     Indication: HODGKIN^S DISEASE
     Dosage: 70 MG, QD
     Route: 041
     Dates: start: 20210622, end: 20210622
  14. ENDOXAN [Suspect]
     Active Substance: CYCLOPHOSPHAMIDE
     Indication: HODGKIN^S DISEASE
     Dosage: 2500 MG
     Route: 041
     Dates: start: 20210622, end: 20210622
  15. VINCRISTINE SULPHATE [Suspect]
     Active Substance: VINCRISTINE SULFATE
     Indication: HODGKIN^S DISEASE
     Dosage: 2 MG, QD (ON D8)
     Route: 041
     Dates: start: 20210629, end: 20210629
  16. PROCARBAZINE [Suspect]
     Active Substance: PROCARBAZINE
     Dosage: 200 MG, QD
     Route: 048
     Dates: start: 20210714, end: 20210720

REACTIONS (2)
  - Myocardial infarction [Recovering/Resolving]
  - Coronary artery thrombosis [Recovering/Resolving]

NARRATIVE: CASE EVENT DATE: 20210719
